FAERS Safety Report 24977949 (Version 1)
Quarter: 2025Q1

REPORT INFORMATION
  Report Type: Spontaneous
  Country: IL (occurrence: IL)
  Receive Date: 20250217
  Receipt Date: 20250217
  Transmission Date: 20250409
  Serious: Yes (Death, Hospitalization, Other)
  Sender: REGENERON
  Company Number: IL-Medison-001000

PATIENT
  Age: 60 Year
  Sex: Male

DRUGS (1)
  1. LIBTAYO [Suspect]
     Active Substance: CEMIPLIMAB-RWLC
     Indication: Squamous cell carcinoma of skin

REACTIONS (2)
  - Sepsis [Fatal]
  - Myocarditis [Unknown]
